FAERS Safety Report 13127968 (Version 2)
Quarter: 2017Q2

REPORT INFORMATION
  Report Type: Spontaneous
  Country: KR (occurrence: KR)
  Receive Date: 20170118
  Receipt Date: 20170606
  Transmission Date: 20170830
  Serious: Yes (Hospitalization)
  Sender: FDA-Public Use
  Company Number: KR-009507513-1701KOR006844

PATIENT
  Age: 64 Year
  Sex: Female

DRUGS (41)
  1. ALIMTA [Concomitant]
     Active Substance: PEMETREXED DISODIUM
     Dosage: 760 MG, ONCE CYCLE 2
     Route: 042
     Dates: start: 20161020, end: 20161020
  2. ALIMTA [Concomitant]
     Active Substance: PEMETREXED DISODIUM
     Dosage: 755 MG, ONCE CYCLE 4
     Route: 042
     Dates: start: 20161201, end: 20161201
  3. DEXAMETHASONE SODIUM PHOSPHATE. [Concomitant]
     Active Substance: DEXAMETHASONE SODIUM PHOSPHATE
     Indication: PROPHYLAXIS
     Dosage: 8 MG, ONCE, STRENGTH 5MG/ML
     Route: 042
     Dates: start: 20160930, end: 20160930
  4. DEXAMETHASONE SODIUM PHOSPHATE. [Concomitant]
     Active Substance: DEXAMETHASONE SODIUM PHOSPHATE
     Dosage: 8 MG, ONCE, STRENGTH 5MG/ML
     Route: 042
     Dates: start: 20161021, end: 20161021
  5. DEXAMETHASONE SODIUM PHOSPHATE. [Concomitant]
     Active Substance: DEXAMETHASONE SODIUM PHOSPHATE
     Dosage: 4 MG, BID, STRENGTH 5MG/ML
     Route: 042
     Dates: start: 20161022, end: 20161023
  6. DEXAMETHASONE. [Concomitant]
     Active Substance: DEXAMETHASONE
     Indication: PROPHYLAXIS
     Dosage: 8 MG, BID
     Route: 048
     Dates: start: 20161001, end: 20161002
  7. ALOXI [Concomitant]
     Active Substance: PALONOSETRON HYDROCHLORIDE
     Indication: PREMEDICATION
     Dosage: 5 ML, ONCE
     Route: 042
     Dates: start: 20160929, end: 20160929
  8. TANTUM [Concomitant]
     Active Substance: BENZYDAMINE HYDROCHLORIDE
     Indication: PROPHYLAXIS
     Dosage: 1 BLT, QD, FORMULATION AND ROUTE: GARGLE
     Dates: start: 20160930, end: 201611
  9. EMEND (FOSAPREPITANT DIMEGLUMINE) [Suspect]
     Active Substance: FOSAPREPITANT DIMEGLUMINE
     Dosage: 150 MG, ONCE
     Route: 042
     Dates: start: 20161201, end: 20161201
  10. CISPLAN [Concomitant]
     Active Substance: CISPLATIN
     Dosage: 114 MG, ONCE CYCLE 3, STRENGTH 50MG/100ML
     Route: 042
     Dates: start: 20161110, end: 20161110
  11. DEXAMETHASONE SODIUM PHOSPHATE. [Concomitant]
     Active Substance: DEXAMETHASONE SODIUM PHOSPHATE
     Dosage: 12 MG, BID, STRENGTH 5MG/ML
     Route: 042
     Dates: start: 20161112, end: 20161113
  12. DEXAMETHASONE SODIUM PHOSPHATE. [Concomitant]
     Active Substance: DEXAMETHASONE SODIUM PHOSPHATE
     Dosage: 12 MG, ONCE, STRENGTH 5MG/ML
     Route: 042
     Dates: start: 20161201, end: 20161201
  13. DEXAMETHASONE. [Concomitant]
     Active Substance: DEXAMETHASONE
     Dosage: 8 MG, ONCE
     Route: 048
     Dates: start: 20161204, end: 20161204
  14. TYLENOL EXTENDED RELIEF CAPLETS [Concomitant]
     Active Substance: ACETAMINOPHEN
     Indication: PROPHYLAXIS
     Dosage: 1 TABLET (650 MG), TID
     Route: 048
     Dates: start: 20160930, end: 20161005
  15. MACPERAN [Concomitant]
     Active Substance: METOCLOPRAMIDE HYDROCHLORIDE
     Indication: PROPHYLAXIS
     Dosage: 1 TABLET, TID
     Route: 048
     Dates: start: 20160930, end: 20161005
  16. EMEND (FOSAPREPITANT DIMEGLUMINE) [Suspect]
     Active Substance: FOSAPREPITANT DIMEGLUMINE
     Dosage: 150 MG, ONCE
     Route: 042
     Dates: start: 20161020, end: 20161020
  17. CISPLAN [Concomitant]
     Active Substance: CISPLATIN
     Dosage: 113 MG, ONCE, CYCLE 4, STRENGTH 50MG/100ML
     Route: 042
     Dates: start: 20161201, end: 20161201
  18. ALOXI [Concomitant]
     Active Substance: PALONOSETRON HYDROCHLORIDE
     Dosage: 5 ML, ONCE
     Route: 042
     Dates: start: 20161110, end: 20161110
  19. CIMETIDINE [Concomitant]
     Active Substance: CIMETIDINE
     Dosage: 1 AMP, QD, STRENGTH 200MG/2ML
     Route: 042
     Dates: start: 20161020, end: 20161023
  20. CIMETIDINE [Concomitant]
     Active Substance: CIMETIDINE
     Dosage: 1 AMP, QD, STRENGTH 200MG/2ML
     Route: 042
     Dates: start: 20161201, end: 20161204
  21. EMEND (FOSAPREPITANT DIMEGLUMINE) [Suspect]
     Active Substance: FOSAPREPITANT DIMEGLUMINE
     Indication: PROPHYLAXIS OF NAUSEA AND VOMITING
     Dosage: 150 MG, ONCE
     Route: 042
     Dates: start: 20160929, end: 20160929
  22. EMEND (FOSAPREPITANT DIMEGLUMINE) [Suspect]
     Active Substance: FOSAPREPITANT DIMEGLUMINE
     Dosage: 150 MG, ONCE
     Route: 042
     Dates: start: 20161110, end: 20161110
  23. DEXAMETHASONE SODIUM PHOSPHATE. [Concomitant]
     Active Substance: DEXAMETHASONE SODIUM PHOSPHATE
     Dosage: 12 MG, ONCE, STRENGTH 5MG/ML
     Route: 042
     Dates: start: 20161020, end: 20161020
  24. DEXAMETHASONE SODIUM PHOSPHATE. [Concomitant]
     Active Substance: DEXAMETHASONE SODIUM PHOSPHATE
     Dosage: 8 MG, BID, STRENGTH 5MG/ML
     Route: 042
     Dates: start: 20161203, end: 20161203
  25. DEXAMETHASONE. [Concomitant]
     Active Substance: DEXAMETHASONE
     Dosage: 8 MG, ONCE
     Route: 048
     Dates: start: 20161113, end: 20161113
  26. ALOXI [Concomitant]
     Active Substance: PALONOSETRON HYDROCHLORIDE
     Dosage: 5 ML, ONCE
     Route: 042
     Dates: start: 20161201, end: 20161201
  27. FOLIC ACID. [Concomitant]
     Active Substance: FOLIC ACID
     Indication: PROPHYLAXIS
     Dosage: 1 TABLET (1 MG), QD
     Route: 048
     Dates: start: 20160928
  28. CISPLAN [Concomitant]
     Active Substance: CISPLATIN
     Indication: LUNG NEOPLASM MALIGNANT
     Dosage: 114 MG, ONCE, CYCLE 1, STRENGTH 50MG/100ML
     Route: 042
     Dates: start: 20160929, end: 20160929
  29. DEXAMETHASONE SODIUM PHOSPHATE. [Concomitant]
     Active Substance: DEXAMETHASONE SODIUM PHOSPHATE
     Indication: PREMEDICATION
     Dosage: 12 MG, ONCE, STRENGTH 5MG/ML
     Route: 042
     Dates: start: 20160929, end: 20160929
  30. SYLCON [Concomitant]
     Indication: DYSPEPSIA
     Dosage: 1 TABLET (625 MG), TID
     Route: 048
     Dates: start: 20160930, end: 20161127
  31. CISPLAN [Concomitant]
     Active Substance: CISPLATIN
     Dosage: 114 MG, ONCE CYCLE 2, STRENGTH 50MG/100ML
     Route: 042
     Dates: start: 20161020, end: 20161020
  32. ALIMTA [Concomitant]
     Active Substance: PEMETREXED DISODIUM
     Indication: LUNG NEOPLASM MALIGNANT
     Dosage: 760 MG, ONCE, CYCLE 1
     Route: 042
     Dates: start: 20160929, end: 20160929
  33. ALIMTA [Concomitant]
     Active Substance: PEMETREXED DISODIUM
     Dosage: 760 MG, ONCE CYCLE 3
     Route: 042
     Dates: start: 20161110, end: 20161110
  34. DEXAMETHASONE SODIUM PHOSPHATE. [Concomitant]
     Active Substance: DEXAMETHASONE SODIUM PHOSPHATE
     Dosage: 8 MG, ONCE, STRENGTH 5MG/ML
     Route: 042
     Dates: start: 20161111, end: 20161111
  35. ALOXI [Concomitant]
     Active Substance: PALONOSETRON HYDROCHLORIDE
     Dosage: 5 ML, ONCE
     Route: 042
     Dates: start: 20161020, end: 20161020
  36. CIMETIDINE [Concomitant]
     Active Substance: CIMETIDINE
     Indication: PREMEDICATION
     Dosage: 1 AMP, QD, STRENGTH 200MG/2ML
     Route: 042
     Dates: start: 20160929, end: 20160930
  37. MAGO [Concomitant]
     Indication: PROPHYLAXIS
     Dosage: 1 CAPSULE (250 MG), QD
     Route: 048
     Dates: start: 20160930, end: 20161127
  38. DEXAMETHASONE SODIUM PHOSPHATE. [Concomitant]
     Active Substance: DEXAMETHASONE SODIUM PHOSPHATE
     Dosage: 12 MG, ONCE, STRENGTH 5MG/ML
     Route: 042
     Dates: start: 20161110, end: 20161110
  39. CIMETIDINE [Concomitant]
     Active Substance: CIMETIDINE
     Dosage: 1 AMP, QD, STRENGTH 200MG/2ML
     Route: 042
     Dates: start: 20161110, end: 20161113
  40. DEXAMETHASONE SODIUM PHOSPHATE. [Concomitant]
     Active Substance: DEXAMETHASONE SODIUM PHOSPHATE
     Dosage: 8 MG, ONCE, STRENGTH 5MG/ML
     Route: 042
     Dates: start: 20161202, end: 20161202
  41. CIMET [Concomitant]
     Indication: PROPHYLACTIC CHEMOTHERAPY
     Dosage: 1 TABLET (200 MG), QD
     Route: 048
     Dates: start: 20161001, end: 20161002

REACTIONS (1)
  - Pleural effusion [Recovered/Resolved]

NARRATIVE: CASE EVENT DATE: 20161012
